FAERS Safety Report 24772958 (Version 2)
Quarter: 2025Q1

REPORT INFORMATION
  Report Type: Spontaneous
  Country: US (occurrence: US)
  Receive Date: 20241225
  Receipt Date: 20250120
  Transmission Date: 20250408
  Serious: No
  Sender: ROCHE
  Company Number: US-ROCHE-10000160232

PATIENT
  Age: 27 Year
  Sex: Female

DRUGS (2)
  1. XOLAIR [Suspect]
     Active Substance: OMALIZUMAB
     Indication: Idiopathic urticaria
     Dosage: STRENGTH: 300MG/2ML
     Route: 058
     Dates: start: 202403
  2. XOLAIR [Suspect]
     Active Substance: OMALIZUMAB
     Indication: Hypersensitivity

REACTIONS (4)
  - Accidental exposure to product [Unknown]
  - No adverse event [Unknown]
  - Product complaint [Unknown]
  - Underdose [Unknown]

NARRATIVE: CASE EVENT DATE: 20241201
